FAERS Safety Report 8473863-0 (Version None)
Quarter: 2012Q2

REPORT INFORMATION
  Report Type: 
  Country: None (occurrence: None)
  Receive Date: 20120628
  Receipt Date: 20120210
  Transmission Date: 20120825
  Serious: Yes (Death)
  Sender: FDA-Public Use
  Company Number: US-MYLANLABS-2012S1000114

PATIENT
  Age: 67 Year
  Sex: Male

DRUGS (13)
  1. COUMADIN [Concomitant]
  2. LORAZEPAM [Concomitant]
  3. METOPROLOL TARTRATE [Concomitant]
  4. CALCIUM [Concomitant]
  5. CELEXA [Concomitant]
  6. FLOMAX [Concomitant]
  7. MULTI-VITAMIN [Concomitant]
  8. ASPIRIN [Concomitant]
  9. ARICEPT [Concomitant]
  10. PLAVIX [Concomitant]
  11. CLOZAPINE [Suspect]
     Route: 048
     Dates: start: 20060101, end: 20110101
  12. CARBIDOPA [Concomitant]
  13. SIMVASTATIN [Concomitant]

REACTIONS (1)
  - PARKINSON'S DISEASE [None]
